FAERS Safety Report 7834042-0 (Version None)
Quarter: 2011Q4

REPORT INFORMATION
  Report Type: 
  Country: None (occurrence: None)
  Receive Date: 20111024
  Receipt Date: 20111024
  Transmission Date: 20120403
  Serious: Yes (Life-Threatening, Hospitalization)
  Sender: FDA-Public Use
  Company Number: None

PATIENT
  Age: 79 Year
  Sex: Female

DRUGS (12)
  1. MULTI-VITAMIN [Concomitant]
  2. TIOTROPIUM INHALER [Concomitant]
  3. ACETAMINOPHEN AND HYDROCODONE BITARTRATE [Concomitant]
  4. MAGNESIUM OXIDE [Concomitant]
  5. PANTOPRAZOLE [Concomitant]
  6. HYDROCHLOROTHIAZIDE [Concomitant]
  7. WARFARIN SODIUM [Suspect]
     Indication: ATRIAL FIBRILLATION
     Dosage: 4MG -2 TABS-
     Route: 048
  8. AMLODIPINE [Concomitant]
  9. ASPIRIN [Concomitant]
     Indication: CARDIOVASCULAR EVENT PROPHYLAXIS
     Dosage: 325MG
     Route: 048
  10. SIMVASTATIN [Concomitant]
  11. CALCIUM CARBONATE [Concomitant]
  12. ACETAMINOPHEN [Concomitant]

REACTIONS (7)
  - GASTROINTESTINAL ULCER HAEMORRHAGE [None]
  - DYSPNOEA [None]
  - INTERNATIONAL NORMALISED RATIO INCREASED [None]
  - CHEST DISCOMFORT [None]
  - GASTROINTESTINAL HAEMORRHAGE [None]
  - FATIGUE [None]
  - ANAEMIA [None]
